FAERS Safety Report 16203280 (Version 1)
Quarter: 2019Q2

REPORT INFORMATION
  Report Type: Spontaneous
  Country: CA (occurrence: CA)
  Receive Date: 20190416
  Receipt Date: 20190416
  Transmission Date: 20190711
  Serious: Yes (Other)
  Sender: FDA-Public Use
  Company Number: CA-PFIZER INC-2019155398

PATIENT
  Age: 28 Year
  Sex: Female

DRUGS (11)
  1. DEPO-PROVERA [Suspect]
     Active Substance: MEDROXYPROGESTERONE ACETATE
     Dosage: UNK
     Route: 030
     Dates: start: 20031114
  2. PATANOL [Concomitant]
     Active Substance: OLOPATADINE HYDROCHLORIDE
     Dosage: 1 DF, 3X/DAY
     Route: 047
  3. DEPO-PROVERA [Suspect]
     Active Substance: MEDROXYPROGESTERONE ACETATE
     Dosage: UNK
     Route: 030
     Dates: start: 20040712
  4. DEPO-PROVERA [Suspect]
     Active Substance: MEDROXYPROGESTERONE ACETATE
     Dosage: UNK
     Route: 030
     Dates: start: 20040923
  5. DEPO-PROVERA [Suspect]
     Active Substance: MEDROXYPROGESTERONE ACETATE
     Dosage: UNK
     Route: 030
     Dates: start: 20040131
  6. DEPO-PROVERA [Suspect]
     Active Substance: MEDROXYPROGESTERONE ACETATE
     Dosage: UNK
     Route: 030
     Dates: start: 20041204
  7. FUCIDIN SODIUM [Concomitant]
     Dosage: UNK UNK, 3X/DAY
     Route: 061
     Dates: start: 20031127
  8. GARASONE [BETAMETHASONE SODIUM PHOSPHATE;GENTAMICIN SULFATE] [Concomitant]
     Dosage: 2 DF, 2X/DAY
     Route: 001
  9. DEPO-PROVERA [Suspect]
     Active Substance: MEDROXYPROGESTERONE ACETATE
     Dosage: UNK
     Route: 030
     Dates: start: 20040422
  10. EPIVAL [VALPROATE SODIUM] [Concomitant]
     Indication: EPILEPSY
     Dosage: UNK
  11. DEPO-PROVERA [Suspect]
     Active Substance: MEDROXYPROGESTERONE ACETATE
     Dosage: UNK
     Route: 030
     Dates: start: 20050212

REACTIONS (6)
  - Foot fracture [Unknown]
  - Avulsion fracture [Unknown]
  - Wrist fracture [Unknown]
  - Radius fracture [Unknown]
  - Fall [Unknown]
  - Osteopenia [Unknown]

NARRATIVE: CASE EVENT DATE: 20050212
